FAERS Safety Report 8131321-7 (Version None)
Quarter: 2012Q1

REPORT INFORMATION
  Report Type: 
  Country: None (occurrence: None)
  Receive Date: 20120213
  Receipt Date: 20120131
  Transmission Date: 20120608
  Serious: Yes (Other)
  Sender: FDA-Public Use
  Company Number: JP-JNJFOC-20111209601

PATIENT
  Age: 60 Year
  Sex: Male
  Weight: 70 kg

DRUGS (8)
  1. REMICADE [Suspect]
     Indication: PSORIASIS
     Route: 042
     Dates: start: 20100430
  2. REMICADE [Suspect]
     Route: 042
     Dates: start: 20100528
  3. REMICADE [Suspect]
     Route: 042
     Dates: start: 20100415
  4. REMICADE [Suspect]
     Route: 042
     Dates: start: 20101029
  5. REMICADE [Suspect]
     Route: 042
     Dates: start: 20100903
  6. ETRETINATE [Concomitant]
     Indication: PSORIASIS
     Route: 065
     Dates: start: 20090801
  7. REMICADE [Suspect]
     Route: 042
     Dates: start: 20100723
  8. METHOTREXATE [Concomitant]
     Indication: PSORIASIS
     Route: 048

REACTIONS (1)
  - SKIN EXFOLIATION [None]
